FAERS Safety Report 7164653-X (Version None)
Quarter: 2010Q4

REPORT INFORMATION
  Report Type: 
  Country: None (occurrence: None)
  Receive Date: 20101215
  Receipt Date: 20101105
  Transmission Date: 20110411
  Serious: Yes (Hospitalization)
  Sender: FDA-Public Use
  Company Number: JP-PFIZER INC-JP-WYE-H18274610

PATIENT
  Sex: Male
  Weight: 40 kg

DRUGS (7)
  1. ZOSYN [Suspect]
     Indication: PNEUMONIA
     Dosage: 4.5 G, 2X/DAY
     Route: 041
     Dates: start: 20101010, end: 20101012
  2. DEPAKENE [Concomitant]
     Indication: EPILEPSY
     Dosage: 1000 MG, 1X/DAY
     Route: 048
  3. AMINO ACIDS NOS/ELECTROLYTES NOS/VITAMINS NOS [Concomitant]
     Indication: DEHYDRATION
     Dosage: 1000 ML, 1X/DAY
     Route: 041
     Dates: start: 20101004
  4. URINORM [Concomitant]
     Indication: HYPERURICAEMIA
     Dosage: 50 MG, 1X/DAY
     Route: 048
  5. CLEANAL [Concomitant]
     Indication: PNEUMONIA
     Dosage: 600 MG 1X/ 1 DAY
     Route: 048
     Dates: start: 20101006
  6. BLOPRESS [Concomitant]
     Indication: HYPERTENSION
     Dosage: 8 MG, 1X/DAY
     Route: 048
  7. TOPIRAMATE [Concomitant]
     Indication: EPILEPSY
     Dosage: 200 MG, 1X/DAY
     Route: 048

REACTIONS (2)
  - FATIGUE [None]
  - RENAL FAILURE ACUTE [None]
